FAERS Safety Report 9916203 (Version 1)
Quarter: 2014Q1

REPORT INFORMATION
  Report Type: Spontaneous
  Country: FR (occurrence: None)
  Receive Date: 20140219
  Receipt Date: 20140219
  Transmission Date: 20141002
  Serious: Yes (Hospitalization)
  Sender: FDA-Public Use
  Company Number: FK201400540

PATIENT
  Age: 66 Year
  Sex: Female

DRUGS (8)
  1. PACLITAXEL [Suspect]
     Indication: CERVIX CANCER METASTATIC
     Dosage: 80 MG/M2, INTRAVNOUS (NOT OTHERWISE SPECIFIED)?
     Route: 042
     Dates: start: 20121214
  2. CARBOPLATINE HOSPIRA [Suspect]
     Indication: CERVIX CANCER METASTATIC
     Dosage: INTRAVEOUS (NOT OTHERWISE SPECIFIED)?
     Route: 042
     Dates: start: 20121214, end: 20130503
  3. CISPLATINE MYLAN [Suspect]
     Indication: CERVIX CANCER METASTATIC
     Dosage: 50 MG/M2, INTRAVENOUS (NOT OTHERWISE SPECIFIED)?
     Route: 042
     Dates: start: 20110916, end: 20120102
  4. HYCAMTIN [Suspect]
     Indication: CERVIX CANCER METASTATIC
     Dosage: 0.75 MG/M2, INTRAVENOUS (NOT OTHERWISE SPECIFIED)
     Route: 042
     Dates: start: 20110916, end: 20120104
  5. JAMYLENE (DOCUSATE SODIUM) [Concomitant]
  6. AMLOR (AMLODIPINE BESILATE) [Concomitant]
  7. FORLAX (MACROGOL) [Concomitant]
  8. SOLUPRED (PREDNISOLONE) [Concomitant]

REACTIONS (3)
  - Myelodysplastic syndrome [None]
  - Renal failure acute [None]
  - Haematotoxicity [None]
